FAERS Safety Report 5618903-9 (Version None)
Quarter: 2008Q1

REPORT INFORMATION
  Report Type: 
  Country: None (occurrence: None)
  Receive Date: 20080207
  Receipt Date: 20080124
  Transmission Date: 20080703
  Serious: Yes (Other)
  Sender: FDA-Public Use
  Company Number: GB-ELI_LILLY_AND_COMPANY-GBS050918331

PATIENT
  Age: 46 Year
  Sex: Female

DRUGS (1)
  1. YENTREVE [Suspect]
     Indication: STRESS URINARY INCONTINENCE
     Dosage: 40 MG, 2/D
     Route: 048
     Dates: start: 20050101

REACTIONS (3)
  - FATIGUE [None]
  - NARCOLEPSY [None]
  - NAUSEA [None]
